FAERS Safety Report 9681958 (Version 1)
Quarter: 2013Q4

REPORT INFORMATION
  Report Type: Spontaneous
  Country: US (occurrence: US)
  Receive Date: 20131111
  Receipt Date: 20131111
  Transmission Date: 20140711
  Serious: Yes (Other)
  Sender: FDA-Public Use
  Company Number: US-PFIZER INC-2013320865

PATIENT
  Age: 56 Year
  Sex: Male
  Weight: 63.5 kg

DRUGS (7)
  1. LYRICA [Suspect]
     Indication: TRIGEMINAL NEURALGIA
     Dosage: 100 MG, 3X/DAY
     Dates: start: 2007
  2. LYRICA [Suspect]
     Indication: BRACHIAL PLEXUS INJURY
  3. METOPROLOL [Concomitant]
     Indication: HYPERTENSION
     Dosage: UNK, 2X/DAY
  4. ENALAPRIL [Concomitant]
     Indication: HYPERTENSION
     Dosage: UNK, 2X/DAY
     Dates: end: 2013
  5. CLONIDINE [Concomitant]
     Indication: HYPERTENSION
     Dosage: UNK, 2X/DAY
     Dates: end: 2013
  6. VERAPAMIL [Concomitant]
     Indication: HYPERTENSION
     Dosage: UNK, 1X/DAY
     Dates: end: 2013
  7. HYDROCHLOROTHIAZIDE [Concomitant]
     Indication: HYPERTENSION
     Dosage: UNK
     Dates: end: 2013

REACTIONS (2)
  - Lung neoplasm malignant [Not Recovered/Not Resolved]
  - Hypotension [Unknown]
